FAERS Safety Report 9137639 (Version 1)
Quarter: 2013Q1

REPORT INFORMATION
  Report Type: Spontaneous
  Country: US (occurrence: US)
  Receive Date: 20130304
  Receipt Date: 20130304
  Transmission Date: 20140127
  Serious: No
  Sender: FDA-Public Use
  Company Number: US-ABBOTT-12P-163-0977866-00

PATIENT
  Sex: Male
  Weight: 104.42 kg

DRUGS (5)
  1. ANDROGEL [Suspect]
     Indication: BLOOD TESTOSTERONE DECREASED
     Dosage: 2 PUMPS PER DAY TOTAL
     Dates: start: 2012
  2. XANAX [Concomitant]
     Indication: ANXIETY
  3. VICODIN [Concomitant]
     Indication: PRODUCT USED FOR UNKNOWN INDICATION
  4. UNKNOWN BLOOD PRESSURE MEDICINE [Concomitant]
     Indication: BLOOD PRESSURE
  5. UNKNOWN MEDICATION (NON-ABBOTT) [Concomitant]
     Indication: BLOOD CHOLESTEROL

REACTIONS (2)
  - Blood testosterone decreased [Unknown]
  - Instillation site paraesthesia [Unknown]
